FAERS Safety Report 5723026-4 (Version None)
Quarter: 2008Q2

REPORT INFORMATION
  Report Type: 
  Country: None (occurrence: None)
  Receive Date: 20080428
  Receipt Date: 20080428
  Transmission Date: 20081010
  Serious: Yes (Other)
  Sender: FDA-Public Use
  Company Number: None

PATIENT
  Age: 48 Year
  Sex: Female

DRUGS (1)
  1. FENTANYL [Suspect]
     Indication: PAIN IN EXTREMITY
     Dosage: APPLY 1 PATCH EVERY 3 DAYS
     Dates: start: 20080221

REACTIONS (2)
  - PHARMACEUTICAL PRODUCT COMPLAINT [None]
  - SKIN DISORDER [None]
